FAERS Safety Report 14313853 (Version 1)
Quarter: 2017Q4

REPORT INFORMATION
  Report Type: Report from Study
  Country: AR (occurrence: AR)
  Receive Date: 20171221
  Receipt Date: 20171221
  Transmission Date: 20180321
  Serious: Yes (Death, Hospitalization)
  Sender: FDA-Public Use
  Company Number: AR-ACTELION-A-CH2017-163360

PATIENT
  Age: 68 Year
  Sex: Female

DRUGS (1)
  1. OPSUMIT [Suspect]
     Active Substance: MACITENTAN
     Indication: PULMONARY HYPERTENSION
     Dosage: UNK
     Route: 048
     Dates: start: 20160916

REACTIONS (4)
  - Respiratory failure [Fatal]
  - Oxygen saturation decreased [Fatal]
  - Condition aggravated [Unknown]
  - Fluid retention [Unknown]

NARRATIVE: CASE EVENT DATE: 20171126
